FAERS Safety Report 17763024 (Version 2)
Quarter: 2020Q2

REPORT INFORMATION
  Report Type: Spontaneous
  Country: US (occurrence: US)
  Receive Date: 20200508
  Receipt Date: 20200513
  Transmission Date: 20200714
  Serious: Yes (Death, Life-Threatening, Hospitalization, Other)
  Sender: FDA-Public Use
  Company Number: US-PFIZER INC-2020182249

PATIENT
  Age: 21 Year
  Sex: Male

DRUGS (3)
  1. AMLODIPINE [Concomitant]
     Active Substance: AMLODIPINE BESYLATE
     Indication: HYPERTENSION
     Dosage: UNK
  2. ATENOLOL. [Concomitant]
     Active Substance: ATENOLOL
     Indication: HYPERTENSION
     Dosage: UNK
  3. TACROLIMUS. [Suspect]
     Active Substance: TACROLIMUS
     Indication: IMMUNOSUPPRESSANT DRUG THERAPY
     Dosage: UNK (TACROLIMUS WITH DECREASED THERAPEUTIC GOALS)

REACTIONS (8)
  - Adenocarcinoma of colon [Fatal]
  - Metastases to abdominal cavity [Fatal]
  - Intestinal obstruction [Fatal]
  - Respiratory failure [Fatal]
  - Hepatic lesion [Fatal]
  - Pleural effusion [Fatal]
  - Lymphadenopathy [Fatal]
  - Cardiac arrest [Fatal]
